FAERS Safety Report 10404067 (Version 2)
Quarter: 2014Q3

REPORT INFORMATION
  Report Type: Spontaneous
  Country: FR (occurrence: FR)
  Receive Date: 20140823
  Receipt Date: 20140823
  Transmission Date: 20150326
  Serious: Yes (Death, Hospitalization)
  Sender: FDA-Public Use
  Company Number: FR-ACCORD-023521

PATIENT
  Age: 72 Year
  Sex: Female

DRUGS (2)
  1. GRANOCYTE [Suspect]
     Active Substance: LENOGRASTIM
     Indication: BREAST CANCER
     Route: 058
     Dates: start: 20140307, end: 20140311
  2. DOCETAXEL ACCORD [Suspect]
     Active Substance: DOCETAXEL
     Indication: BREAST CANCER
     Route: 042
     Dates: start: 20140306, end: 20140306

REACTIONS (1)
  - Toxic epidermal necrolysis [Fatal]

NARRATIVE: CASE EVENT DATE: 201403
